FAERS Safety Report 5882958-7 (Version None)
Quarter: 2008Q3

REPORT INFORMATION
  Report Type: 
  Country: None (occurrence: None)
  Receive Date: 20080913
  Receipt Date: 20080822
  Transmission Date: 20090109
  Serious: No
  Sender: FDA-Public Use
  Company Number: US-ABBOTT-08P-163-0472310-00

PATIENT
  Sex: Female

DRUGS (3)
  1. HUMIRA [Suspect]
     Indication: ANKYLOSING SPONDYLITIS
     Route: 058
     Dates: start: 20071106, end: 20071116
  2. HUMIRA [Suspect]
     Indication: CROHN'S DISEASE
  3. OXCARBAZEPINE [Concomitant]
     Indication: FACIAL PALSY
     Dosage: 1 - 150 MILLIGRAM TABLET- AT BEDTIME
     Route: 048

REACTIONS (5)
  - ARTHRALGIA [None]
  - BACK PAIN [None]
  - BONE PAIN [None]
  - CROHN'S DISEASE [None]
  - MUSCULOSKELETAL PAIN [None]
